FAERS Safety Report 6227639-5 (Version None)
Quarter: 2009Q2

REPORT INFORMATION
  Report Type: 
  Country: None (occurrence: None)
  Receive Date: 20090612
  Receipt Date: 20090602
  Transmission Date: 20091009
  Serious: Yes (Hospitalization)
  Sender: FDA-Public Use
  Company Number: PHHY2009FR19473

PATIENT
  Sex: Female

DRUGS (9)
  1. CO-TAREG [Suspect]
     Dosage: 1 DF, QD
     Route: 048
     Dates: end: 20081013
  2. LASIX [Suspect]
     Dosage: 1 DF, QD
     Route: 048
     Dates: end: 20081013
  3. SULFARLEM [Concomitant]
     Dosage: 25 MG, QID
     Route: 048
  4. GLUCOPHAGE [Concomitant]
     Dosage: 850 MG, BID
     Route: 048
  5. MONO-TILDIEM [Concomitant]
     Dosage: 1 DF, QD
     Route: 048
  6. CERVOXAN [Concomitant]
     Dosage: 60 MG, BID
     Route: 048
     Dates: end: 20081021
  7. MOPRAL [Concomitant]
     Dosage: 1 DF, QD
     Dates: end: 20081021
  8. TEMESTA [Concomitant]
     Dosage: 2.5 MG, QD
     Route: 048
  9. LORMETAZEPAM [Concomitant]
     Dosage: 0.5 MG, QD
     Route: 048
     Dates: end: 20081021

REACTIONS (13)
  - ALANINE AMINOTRANSFERASE INCREASED [None]
  - ANOREXIA [None]
  - ASPARTATE AMINOTRANSFERASE INCREASED [None]
  - ASTHENIA [None]
  - BALANCE DISORDER [None]
  - BLOOD CREATINE PHOSPHOKINASE INCREASED [None]
  - CELL DEATH [None]
  - CREPITATIONS [None]
  - GENERAL PHYSICAL HEALTH DETERIORATION [None]
  - HYPOCHLORAEMIA [None]
  - HYPOKALAEMIA [None]
  - METABOLIC ALKALOSIS [None]
  - RHABDOMYOLYSIS [None]
